FAERS Safety Report 5742708-1 (Version None)
Quarter: 2008Q2

REPORT INFORMATION
  Report Type: 
  Country: None (occurrence: None)
  Receive Date: 20080519
  Receipt Date: 20080514
  Transmission Date: 20081010
  Serious: Yes (Disabling)
  Sender: FDA-Public Use
  Company Number: B0511841A

PATIENT
  Age: 53 Year
  Sex: Female

DRUGS (2)
  1. TYVERB [Suspect]
     Dosage: 1250MG PER DAY
     Route: 048
     Dates: end: 20080222
  2. XELODA [Suspect]
     Dosage: 2800MG PER DAY
     Route: 048

REACTIONS (3)
  - PALMAR-PLANTAR ERYTHRODYSAESTHESIA SYNDROME [None]
  - PARONYCHIA [None]
  - ULCER [None]
